FAERS Safety Report 4552562-1 (Version None)
Quarter: 2005Q1

REPORT INFORMATION
  Report Type: 
  Country: None (occurrence: None)
  Receive Date: 20050114
  Receipt Date: 20040902
  Transmission Date: 20050727
  Serious: No
  Sender: FDA-Public Use
  Company Number: US-GLAXOSMITHKLINE-A0524518A

PATIENT
  Age: 40 Year
  Sex: Female

DRUGS (14)
  1. IMITREX [Suspect]
     Indication: MIGRAINE
     Route: 058
  2. ZOMIG [Concomitant]
  3. LESCOL [Concomitant]
  4. OXYCONTIN [Concomitant]
  5. AMBIEN [Concomitant]
  6. INDOCIN [Concomitant]
  7. COMPAZINE [Concomitant]
  8. ALLEGRA-D [Concomitant]
  9. SOMA [Concomitant]
  10. PROMETHAZINE [Concomitant]
  11. VICKS SINEX [Concomitant]
  12. PROVIGIL [Concomitant]
  13. VITALERT [Concomitant]
  14. CORAL CALCIUM [Concomitant]

REACTIONS (2)
  - BLOOD CALCIUM INCREASED [None]
  - MEDICATION ERROR [None]
